FAERS Safety Report 21066097 (Version 2)
Quarter: 2022Q3

REPORT INFORMATION
  Report Type: Spontaneous
  Country: FR (occurrence: FR)
  Receive Date: 20220711
  Receipt Date: 20220718
  Transmission Date: 20221027
  Serious: Yes (Hospitalization, Other)
  Sender: FDA-Public Use
  Company Number: None

PATIENT
  Age: 54 Year
  Sex: Male

DRUGS (3)
  1. COMIRNATY [Suspect]
     Active Substance: TOZINAMERAN
     Indication: COVID-19 immunisation
     Dosage: DOSE 2, 30 UG, SINGLE
     Route: 030
     Dates: start: 20210510, end: 20210510
  2. COMIRNATY [Suspect]
     Active Substance: TOZINAMERAN
     Dosage: DOSE 1, 30 UG, SINGLE
     Route: 030
     Dates: start: 20210417, end: 20210417
  3. RITUXIMAB [Suspect]
     Active Substance: RITUXIMAB
     Dosage: FREQ:2 MO;
     Route: 042
     Dates: start: 20190527

REACTIONS (2)
  - Vaccination failure [Unknown]
  - COVID-19 [Unknown]

NARRATIVE: CASE EVENT DATE: 20211104
